FAERS Safety Report 4598595-0 (Version None)
Quarter: 2005Q1

REPORT INFORMATION
  Report Type: 
  Country: None (occurrence: None)
  Receive Date: 20050304
  Receipt Date: 20050221
  Transmission Date: 20050727
  Serious: Yes (Other)
  Sender: FDA-Public Use
  Company Number: GB-ROCHE-396278

PATIENT
  Age: 100 Year
  Sex: Female
  Weight: 57.3 kg

DRUGS (6)
  1. TAMIFLU [Suspect]
     Indication: DRUG USE FOR UNKNOWN INDICATION
     Route: 048
     Dates: start: 20050126, end: 20050131
  2. ASPIRIN [Concomitant]
     Route: 065
  3. CO-CODAMOL [Concomitant]
     Dosage: DOSE DAILY REPORTED AS 8/500 2 FOUR TIMES DAILY PRN.
  4. VALPROATE SODIUM [Concomitant]
     Route: 065
  5. FERROUS SULFATE TAB [Concomitant]
  6. FRUSEMIDE [Concomitant]
     Route: 065

REACTIONS (4)
  - CHROMATURIA [None]
  - HAEMATURIA [None]
  - PROTEINURIA [None]
  - URINE ODOUR ABNORMAL [None]
